FAERS Safety Report 12680265 (Version 1)
Quarter: 2016Q3

REPORT INFORMATION
  Report Type: Spontaneous
  Country: US (occurrence: None)
  Receive Date: 20160823
  Receipt Date: 20160823
  Transmission Date: 20161109
  Serious: No
  Sender: FDA-Public Use
  Company Number: None

PATIENT
  Age: 50 Year
  Sex: Female

DRUGS (21)
  1. EPINEPHRINE. [Concomitant]
     Active Substance: EPINEPHRINE
  2. FLUCONAZOLE. [Concomitant]
     Active Substance: FLUCONAZOLE
  3. NYSTATIN. [Concomitant]
     Active Substance: NYSTATIN
  4. CHLORHEXADINE [Concomitant]
     Active Substance: CHLORHEXIDINE
  5. PHENYLEPHRINE [Concomitant]
     Active Substance: PHENYLEPHRINE\PHENYLEPHRINE HYDROCHLORIDE
  6. AZATHIOPRINE. [Concomitant]
     Active Substance: AZATHIOPRINE
  7. FAMOTIDINE. [Concomitant]
     Active Substance: FAMOTIDINE
  8. GANCICLOVIR. [Concomitant]
     Active Substance: GANCICLOVIR
  9. SENNA [Concomitant]
     Active Substance: SENNA LEAF\SENNOSIDES\SENNOSIDES A AND B
  10. DEXMEDETOMIDINE. [Suspect]
     Active Substance: DEXMEDETOMIDINE
     Indication: SEDATION
     Dosage: 0.1-0.5 MCG/KG/HR CONTINUOUS IV
     Route: 042
     Dates: start: 20160717, end: 20160718
  11. ATOVAQUONE. [Concomitant]
     Active Substance: ATOVAQUONE
  12. HALOPERIDOL. [Concomitant]
     Active Substance: HALOPERIDOL
  13. TACROLIMUS. [Concomitant]
     Active Substance: TACROLIMUS
  14. URSODIAL [Concomitant]
  15. HYDROMORPHONE [Concomitant]
     Active Substance: HYDROMORPHONE
  16. METHYLPREDNISOLONE. [Concomitant]
     Active Substance: METHYLPREDNISOLONE
  17. ACETAMINOPHEN. [Concomitant]
     Active Substance: ACETAMINOPHEN
  18. FENTANYL. [Concomitant]
     Active Substance: FENTANYL
  19. INSULIN ASPART [Concomitant]
     Active Substance: INSULIN ASPART
  20. PIPERACILLIN/TAZOBACTAM [Concomitant]
     Active Substance: PIPERACILLIN SODIUM\TAZOBACTAM SODIUM
  21. PREDNISONE. [Concomitant]
     Active Substance: PREDNISONE

REACTIONS (5)
  - Bradycardia [None]
  - Mean arterial pressure decreased [None]
  - Mean arterial pressure increased [None]
  - Disease recurrence [None]
  - Hypotension [None]

NARRATIVE: CASE EVENT DATE: 20160717
